FAERS Safety Report 19738131 (Version 1)
Quarter: 2021Q3

REPORT INFORMATION
  Report Type: Spontaneous
  Country: DE (occurrence: DE)
  Receive Date: 20210823
  Receipt Date: 20210823
  Transmission Date: 20211014
  Serious: Yes (Hospitalization)
  Sender: FDA-Public Use
  Company Number: DE-MYLANLABS-2021M1054265

PATIENT
  Age: 15 Year
  Sex: Female
  Weight: 32 kg

DRUGS (7)
  1. DIAZEPAM. [Concomitant]
     Active Substance: DIAZEPAM
     Indication: EPILEPSY
     Dosage: 10 MILLIGRAM (IF THERE IS A SEIZURE MORE THAN 3 MINUTES)
     Route: 054
  2. KEPPRA [Suspect]
     Active Substance: LEVETIRACETAM
     Indication: EPILEPSY
     Dosage: UNK 0,8?0?1G
     Route: 048
     Dates: start: 20150316
  3. L?ARGININE                         /00126101/ [Concomitant]
     Active Substance: ARGININE
     Dosage: 6 GRAM, QD (EVERY DAYS 3 SEPARATED DOSES)
     Route: 048
  4. L?THYROXINE                        /00068002/ [Concomitant]
     Active Substance: LEVOTHYROXINE SODIUM
     Indication: HYPOTHYROIDISM
     Dosage: 37.5 MICROGRAM, QD
     Route: 048
     Dates: start: 20171124
  5. COENZYM Q10 [Concomitant]
     Indication: MELAS SYNDROME
     Dosage: 300 MILLIGRAM, QD (EVERY DAYS 3 SEPARATED DOSES)
     Route: 048
     Dates: start: 20150409
  6. TOPIRAMATE. [Suspect]
     Active Substance: TOPIRAMATE
     Indication: EPILEPSY
     Dosage: UNK 50?0?75MG
     Route: 048
  7. OXCARBAZEPINE. [Suspect]
     Active Substance: OXCARBAZEPINE
     Indication: EPILEPSY
     Dosage: UNK (300?0?600MG)
     Route: 048
     Dates: start: 20150316

REACTIONS (4)
  - Hyponatraemia [Unknown]
  - Blood osmolarity decreased [Unknown]
  - Headache [Unknown]
  - Paraesthesia [Unknown]

NARRATIVE: CASE EVENT DATE: 20180725
